FAERS Safety Report 10185676 (Version 1)
Quarter: 2014Q2

REPORT INFORMATION
  Report Type: Spontaneous
  Country: JP (occurrence: JP)
  Receive Date: 20140521
  Receipt Date: 20140521
  Transmission Date: 20141212
  Serious: Yes (Death)
  Sender: FDA-Public Use
  Company Number: JP-BAYER-2014-071514

PATIENT
  Age: 66 Year
  Sex: Female

DRUGS (6)
  1. STIVARGA [Suspect]
     Indication: COLORECTAL CANCER
     Dosage: 120 MG, QD
     Route: 048
     Dates: start: 20131205, end: 20140411
  2. GASTER [Concomitant]
  3. PROMAC NOS [Concomitant]
     Route: 048
  4. BLOPRESS [Concomitant]
     Route: 048
  5. ALLELOCK [Concomitant]
     Route: 048
  6. TRAMAL [Concomitant]

REACTIONS (1)
  - Fungal infection [Fatal]
